FAERS Safety Report 6526149-5 (Version None)
Quarter: 2010Q1

REPORT INFORMATION
  Report Type: 
  Country: None (occurrence: None)
  Receive Date: 20100104
  Receipt Date: 20091211
  Transmission Date: 20100710
  Serious: Yes (Other)
  Sender: FDA-Public Use
  Company Number: US-BAXTER-2009BH014039

PATIENT

DRUGS (33)
  1. GAMMAGARD LIQUID [Suspect]
     Indication: DRUG EXPOSURE DURING PREGNANCY
     Route: 064
  2. GAMMAGARD LIQUID [Suspect]
     Route: 064
     Dates: start: 20090401, end: 20090401
  3. GAMMAGARD LIQUID [Suspect]
     Route: 064
     Dates: start: 20090401, end: 20090401
  4. GAMMAGARD LIQUID [Suspect]
     Route: 064
     Dates: start: 20090401, end: 20090401
  5. GAMMAGARD LIQUID [Suspect]
     Route: 064
     Dates: start: 20090401, end: 20090401
  6. GAMMAGARD LIQUID [Suspect]
     Route: 064
     Dates: start: 20090401, end: 20090401
  7. GAMMAGARD LIQUID [Suspect]
     Route: 064
     Dates: start: 20090401, end: 20090401
  8. GAMMAGARD LIQUID [Suspect]
     Route: 064
     Dates: start: 20090401, end: 20090401
  9. GAMMAGARD LIQUID [Suspect]
     Route: 064
     Dates: start: 20090301, end: 20090301
  10. GAMMAGARD LIQUID [Suspect]
     Route: 064
     Dates: start: 20090301, end: 20090301
  11. GAMMAGARD LIQUID [Suspect]
     Route: 064
     Dates: start: 20090301, end: 20090301
  12. GAMMAGARD LIQUID [Suspect]
     Route: 064
     Dates: start: 20090301, end: 20090301
  13. GAMMAGARD LIQUID [Suspect]
     Route: 064
     Dates: start: 20090201, end: 20090201
  14. GAMMAGARD LIQUID [Suspect]
     Route: 064
     Dates: start: 20090201, end: 20090201
  15. GAMMAGARD LIQUID [Suspect]
     Route: 064
     Dates: start: 20090201, end: 20090201
  16. GAMMAGARD LIQUID [Suspect]
     Route: 064
     Dates: start: 20090201, end: 20090201
  17. GAMMAGARD LIQUID [Suspect]
     Route: 064
     Dates: start: 20090201, end: 20090201
  18. GAMMAGARD LIQUID [Suspect]
     Route: 064
     Dates: start: 20090101, end: 20090101
  19. GAMMAGARD LIQUID [Suspect]
     Route: 064
     Dates: start: 20090101, end: 20090101
  20. GAMMAGARD LIQUID [Suspect]
     Route: 064
     Dates: start: 20090101, end: 20090101
  21. GAMMAGARD LIQUID [Suspect]
     Route: 064
     Dates: start: 20090101, end: 20090101
  22. GAMMAGARD LIQUID [Suspect]
     Route: 064
     Dates: start: 20081201, end: 20081201
  23. GAMMAGARD LIQUID [Suspect]
     Route: 064
     Dates: start: 20081201, end: 20081201
  24. GAMMAGARD LIQUID [Suspect]
     Route: 064
     Dates: start: 20081201, end: 20081201
  25. GAMMAGARD LIQUID [Suspect]
     Route: 064
     Dates: start: 20081201, end: 20081201
  26. GAMMAGARD LIQUID [Suspect]
     Route: 064
     Dates: start: 20081201, end: 20081201
  27. GAMMAGARD LIQUID [Suspect]
     Route: 064
     Dates: start: 20081101, end: 20081101
  28. GAMMAGARD LIQUID [Suspect]
     Route: 064
     Dates: start: 20081101, end: 20081101
  29. GAMMAGARD LIQUID [Suspect]
     Route: 064
     Dates: start: 20081101, end: 20081101
  30. GAMMAGARD LIQUID [Suspect]
     Route: 064
     Dates: start: 20081001, end: 20081001
  31. GAMMAGARD LIQUID [Suspect]
     Route: 064
     Dates: start: 20081001, end: 20081001
  32. GAMMAGARD LIQUID [Suspect]
     Route: 064
     Dates: start: 20081001, end: 20081001
  33. GAMMAGARD LIQUID [Suspect]
     Route: 064
     Dates: start: 20081001, end: 20081001

REACTIONS (2)
  - DRUG EXPOSURE DURING PREGNANCY [None]
  - HEPATITIS B ANTIBODY POSITIVE [None]
